FAERS Safety Report 8003549-8 (Version None)
Quarter: 2011Q4

REPORT INFORMATION
  Report Type: 
  Country: None (occurrence: None)
  Receive Date: 20111222
  Receipt Date: 20111209
  Transmission Date: 20120403
  Serious: Yes (Hospitalization, Other)
  Sender: FDA-Public Use
  Company Number: MX-SANOFI-AVENTIS-2011SA080922

PATIENT
  Age: 50 Year
  Sex: Male

DRUGS (3)
  1. LANTUS [Suspect]
     Dosage: 15 IU IN THE MORNING, 15 IU IN THE AFTERNOON AND 15 IU IN THE EVENING
     Route: 058
  2. LANTUS [Suspect]
     Indication: DIABETES MELLITUS
     Dosage: 15 IU IN THE MORNING AND 15 IU AT NIGHT
     Route: 058
     Dates: start: 20090101
  3. ANTIHYPERTENSIVES [Concomitant]

REACTIONS (10)
  - HYPERGLYCAEMIA [None]
  - ANAEMIA [None]
  - MALAISE [None]
  - DIZZINESS [None]
  - NECROTISING FASCIITIS [None]
  - NAUSEA [None]
  - ABDOMINAL PAIN UPPER [None]
  - DRUG ADMINISTRATION ERROR [None]
  - DECREASED APPETITE [None]
  - VOMITING [None]
